FAERS Safety Report 8590712-0 (Version None)
Quarter: 2012Q3

REPORT INFORMATION
  Report Type: 
  Country: None (occurrence: None)
  Receive Date: 20120731
  Receipt Date: 20120717
  Transmission Date: 20120928
  Serious: Yes (Death, Hospitalization)
  Sender: FDA-Public Use
  Company Number: DSM-2012-00779

PATIENT
  Age: 83 Year
  Sex: Female

DRUGS (3)
  1. METFORMIN HCL [Suspect]
     Indication: DIABETES MELLITUS
     Dosage: 2550 MG (3 IN 1 D), ORAL
     Route: 048
     Dates: start: 20111001, end: 20120607
  2. OLMESARTAN MEDOXOMIL/AMLODIPINE BESYLATE/HYDROCHLOROTHIAZIDE [Suspect]
     Indication: HYPERTENSION
     Dosage: 40/10/12.5 MG (1 IN 1 D), ORAL
     Route: 048
     Dates: start: 20111001
  3. ACENOCUMAROL [Concomitant]

REACTIONS (8)
  - RENAL FAILURE ACUTE [None]
  - OEDEMA PERIPHERAL [None]
  - SHOCK [None]
  - LACTIC ACIDOSIS [None]
  - RENAL FAILURE CHRONIC [None]
  - VOMITING [None]
  - ABDOMINAL PAIN [None]
  - ACUTE PRERENAL FAILURE [None]
